FAERS Safety Report 24159482 (Version 5)
Quarter: 2025Q1

REPORT INFORMATION
  Report Type: Spontaneous
  Country: US (occurrence: US)
  Receive Date: 20240731
  Receipt Date: 20250109
  Transmission Date: 20250408
  Serious: No
  Sender: PFIZER
  Company Number: US-PFIZER INC-PV202400095403

PATIENT
  Age: 71 Year
  Sex: Female
  Weight: 51.3 kg

DRUGS (21)
  1. IBRANCE [Suspect]
     Active Substance: PALBOCICLIB
     Indication: Breast cancer female
     Route: 048
     Dates: start: 20240621, end: 20240815
  2. IBRANCE [Suspect]
     Active Substance: PALBOCICLIB
     Route: 048
     Dates: start: 20240815
  3. LETROZOLE [Concomitant]
     Active Substance: LETROZOLE
  4. METOPROLOL SUCCINATE [Concomitant]
     Active Substance: METOPROLOL SUCCINATE
  5. ATORVASTATIN [Concomitant]
     Active Substance: ATORVASTATIN
  6. TRAZODONE [Concomitant]
     Active Substance: TRAZODONE HYDROCHLORIDE
  7. XARELTO [Concomitant]
     Active Substance: RIVAROXABAN
     Route: 048
  8. DOFETILIDE [Concomitant]
     Active Substance: DOFETILIDE
  9. CALCIUM CARBONATE\CHOLECALCIFEROL [Concomitant]
     Active Substance: CALCIUM CARBONATE\CHOLECALCIFEROL
  10. VITAMIN D NOS [Concomitant]
     Active Substance: CHOLECALCIFEROL\ERGOCALCIFEROL
  11. ONDANSETRON [Concomitant]
     Active Substance: ONDANSETRON
  12. IPRATROPIUM [Concomitant]
     Active Substance: IPRATROPIUM
  13. LIPITOR [Concomitant]
     Active Substance: ATORVASTATIN CALCIUM
     Route: 048
  14. CALCIUM CARBONATE [Concomitant]
     Active Substance: CALCIUM CARBONATE
     Route: 048
  15. CHOLECALCIFEROL [Concomitant]
     Active Substance: CHOLECALCIFEROL
     Route: 048
  16. TIKOSYN [Concomitant]
     Active Substance: DOFETILIDE
     Route: 048
  17. ATROVENT [Concomitant]
     Active Substance: IPRATROPIUM BROMIDE
     Route: 045
  18. FEMARA [Concomitant]
     Active Substance: LETROZOLE
     Route: 048
     Dates: start: 20240614
  19. TOPROL XL [Concomitant]
     Active Substance: METOPROLOL SUCCINATE
     Route: 048
  20. ZOFRAN [Concomitant]
     Active Substance: ONDANSETRON HYDROCHLORIDE
     Indication: Nausea
     Route: 048
     Dates: start: 20240617
  21. DESYREL [Concomitant]
     Active Substance: TRAZODONE HYDROCHLORIDE
     Route: 048

REACTIONS (10)
  - Alopecia [Not Recovered/Not Resolved]
  - Condition aggravated [Not Recovered/Not Resolved]
  - Red blood cell count decreased [Recovered/Resolved]
  - Stomatitis [Recovered/Resolved]
  - Haemorrhage [Not Recovered/Not Resolved]
  - Arthropod bite [Unknown]
  - Arthropod scratch [Unknown]
  - Dyspnoea exertional [Not Recovered/Not Resolved]
  - Vitreous floaters [Not Recovered/Not Resolved]
  - Dyspnoea [Not Recovered/Not Resolved]

NARRATIVE: CASE EVENT DATE: 20240720
